FAERS Safety Report 20040583 (Version 1)
Quarter: 2021Q4

REPORT INFORMATION
  Report Type: Spontaneous
  Country: US (occurrence: None)
  Receive Date: 20211107
  Receipt Date: 20211107
  Transmission Date: 20220303
  Serious: Yes (Other)
  Sender: FDA-Public Use
  Company Number: None

PATIENT
  Age: 51 Year
  Sex: Male
  Weight: 91.12 kg

DRUGS (11)
  1. ALBUTEROL SULFATE [Suspect]
     Active Substance: ALBUTEROL SULFATE
     Indication: Asthma
     Dosage: OTHER STRENGTH : MCG;?OTHER QUANTITY : 200 INHALATION(S);?FREQUENCY : AS NEEDED;?
     Route: 055
     Dates: start: 20210724, end: 20211107
  2. Symbicort Budesinide [Concomitant]
  3. Albuterol Sulfate Cimetidine [Concomitant]
  4. Iansoprazole [Concomitant]
  5. LORATADINE [Concomitant]
     Active Substance: LORATADINE
  6. One a Day Men^s formula [Concomitant]
  7. VITAMIN D3 [Concomitant]
     Active Substance: CHOLECALCIFEROL
  8. CALCIUM [Concomitant]
     Active Substance: CALCIUM
  9. MAGNESIUM [Concomitant]
     Active Substance: MAGNESIUM
  10. ZINC [Concomitant]
     Active Substance: ZINC
  11. VITAMIN B12 [Concomitant]
     Active Substance: CYANOCOBALAMIN

REACTIONS (5)
  - Drug ineffective [None]
  - Product substitution issue [None]
  - Feeling jittery [None]
  - Heart rate increased [None]
  - Headache [None]

NARRATIVE: CASE EVENT DATE: 20211107
